FAERS Safety Report 5885289-4 (Version None)
Quarter: 2008Q3

REPORT INFORMATION
  Report Type: 
  Country: None (occurrence: None)
  Receive Date: 20080916
  Receipt Date: 20080904
  Transmission Date: 20090109
  Serious: Yes (Life-Threatening)
  Sender: FDA-Public Use
  Company Number: NL-PFIZER INC-2008075685

PATIENT
  Sex: Female
  Weight: 61 kg

DRUGS (2)
  1. CHANTIX [Suspect]
     Indication: SMOKING CESSATION THERAPY
     Route: 048
     Dates: start: 20080517
  2. EFFEXOR [Suspect]
     Indication: MENOPAUSAL SYMPTOMS
     Route: 048
     Dates: start: 20060101

REACTIONS (6)
  - ABNORMAL BEHAVIOUR [None]
  - ABNORMAL DREAMS [None]
  - DEREALISATION [None]
  - LIBIDO INCREASED [None]
  - PARAESTHESIA [None]
  - VISUAL ACUITY REDUCED [None]
